FAERS Safety Report 13338617 (Version 2)
Quarter: 2020Q2

REPORT INFORMATION
  Report Type: Spontaneous
  Country: TR (occurrence: TR)
  Receive Date: 20170315
  Receipt Date: 20200604
  Transmission Date: 20200713
  Serious: Yes (Other)
  Sender: FDA-Public Use
  Company Number: TR-PFIZER INC-2017111838

PATIENT
  Age: 49 Year
  Sex: Male
  Weight: 70 kg

DRUGS (2)
  1. SUTENT [Suspect]
     Active Substance: SUNITINIB MALATE
     Indication: CLEAR CELL RENAL CELL CARCINOMA
     Dosage: 50 MG, CYCLIC (4 WEEKS ON, 2 WEEKS OFF)
     Dates: start: 201107
  2. SUTENT [Suspect]
     Active Substance: SUNITINIB MALATE
     Dosage: 37.5 MG, UNK (EVENING)
     Dates: start: 201209

REACTIONS (7)
  - Cardiac failure [Unknown]
  - Neoplasm progression [Unknown]
  - Diabetes mellitus [Unknown]
  - Ejection fraction decreased [Unknown]
  - Hypothyroidism [Unknown]
  - Systolic dysfunction [Unknown]
  - Palmar-plantar erythrodysaesthesia syndrome [Unknown]

NARRATIVE: CASE EVENT DATE: 201209
